FAERS Safety Report 9735782 (Version 2)
Quarter: 2015Q3

REPORT INFORMATION
  Report Type: Spontaneous
  Country: US (occurrence: US)
  Receive Date: 20131206
  Receipt Date: 20150804
  Transmission Date: 20151125
  Serious: No
  Sender: FDA-Public Use
  Company Number: US-GILEAD-2009-0023086

PATIENT
  Age: 72 Year
  Sex: Female
  Weight: 59.87 kg

DRUGS (12)
  1. DIOVAN [Concomitant]
     Active Substance: VALSARTAN
  2. PEPCID [Concomitant]
     Active Substance: FAMOTIDINE
  3. LETAIRIS [Suspect]
     Active Substance: AMBRISENTAN
     Indication: PULMONARY ARTERIAL HYPERTENSION
     Route: 048
     Dates: start: 20090524
  4. ECK EYE DROPS [Concomitant]
  5. FOSAMAX [Concomitant]
     Active Substance: ALENDRONATE SODIUM
  6. BETACAROTENE/MAGNESIUM OXIDE/NICOTINAMIDE/ASCORBIC ACID/CALCIUM PANTOTHENATE/CYANOCOBALAMIN/DEXTRIN/ [Concomitant]
  7. FAMOTIDINE. [Concomitant]
     Active Substance: FAMOTIDINE
  8. PRILOSEC [Concomitant]
     Active Substance: OMEPRAZOLE MAGNESIUM
  9. OCUVITE [Concomitant]
     Active Substance: VITAMINS
  10. VITAMIN D [Concomitant]
     Active Substance: CHOLECALCIFEROL
  11. CALCIUM CITRATE [Concomitant]
     Active Substance: CALCIUM CITRATE
  12. NIFEDIPINE. [Concomitant]
     Active Substance: NIFEDIPINE

REACTIONS (3)
  - Dizziness [Unknown]
  - Fall [Unknown]
  - Peripheral swelling [Unknown]
